FAERS Safety Report 9437452 (Version 1)
Quarter: 2013Q3

REPORT INFORMATION
  Report Type: Spontaneous
  Country: NL (occurrence: None)
  Receive Date: 20130731
  Receipt Date: 20130731
  Transmission Date: 20140515
  Serious: Yes (Other)
  Sender: FDA-Public Use
  Company Number: 2013-3106

PATIENT
  Age: 70 Year
  Sex: Female

DRUGS (1)
  1. SOMATULINE [Suspect]
     Indication: NEUROENDOCRINE TUMOUR
     Dosage: (120 MG, 1 IN 4 WK)
     Route: 058
     Dates: start: 20121206, end: 20130701

REACTIONS (2)
  - Terminal state [None]
  - Drug effect incomplete [None]
